FAERS Safety Report 8214239-0 (Version None)
Quarter: 2012Q1

REPORT INFORMATION
  Report Type: 
  Country: None (occurrence: None)
  Receive Date: 20120315
  Receipt Date: 20120315
  Transmission Date: 20120608
  Serious: Yes (Other)
  Sender: FDA-Public Use
  Company Number: None

PATIENT
  Age: 5 Year
  Sex: Female

DRUGS (3)
  1. ESTROGEL [Suspect]
     Indication: NIGHT SWEATS
     Dosage: 2 PUMPS QD SKIN (ARM)
     Route: 061
     Dates: start: 20101230, end: 20110613
  2. ESTROGEL [Suspect]
     Indication: MENOPAUSAL SYMPTOMS
     Dosage: 2 PUMPS QD SKIN (ARM)
     Route: 061
     Dates: start: 20101230, end: 20110613
  3. ESTROGEL [Suspect]
     Indication: HOT FLUSH
     Dosage: 2 PUMPS QD SKIN (ARM)
     Route: 061
     Dates: start: 20101230, end: 20110613

REACTIONS (2)
  - ACCIDENTAL EXPOSURE [None]
  - BILATERAL BREAST BUDS [None]
